FAERS Safety Report 4523801-8 (Version None)
Quarter: 2004Q4

REPORT INFORMATION
  Report Type: 
  Country: None (occurrence: None)
  Receive Date: 20041210
  Receipt Date: 20041210
  Transmission Date: 20050328
  Serious: No
  Sender: FDA-Public Use
  Company Number: None

PATIENT
  Age: 28 Year
  Sex: Female

DRUGS (1)
  1. TECHNESCAN HDP [Suspect]
     Indication: BONE SCAN
     Dosage: 22 MCI    ONE TIME INTRAVENOUS
     Route: 042

REACTIONS (4)
  - CONTRAST MEDIA REACTION [None]
  - INJECTION SITE CELLULITIS [None]
  - INJECTION SITE ERYTHEMA [None]
  - INJECTION SITE PAIN [None]
